APPROVED DRUG PRODUCT: DUAVEE
Active Ingredient: BAZEDOXIFENE ACETATE; ESTROGENS, CONJUGATED
Strength: EQ 20MG BASE;0.45MG
Dosage Form/Route: TABLET;ORAL
Application: N022247 | Product #001
Applicant: WYETH PHARMACEUTICALS LLC
Approved: Oct 3, 2013 | RLD: Yes | RS: Yes | Type: RX

PATENTS:
Patent 7683051 | Expires: Mar 10, 2027
Patent 7683051 | Expires: Mar 10, 2027